FAERS Safety Report 21191784 (Version 1)
Quarter: 2022Q3

REPORT INFORMATION
  Report Type: Spontaneous
  Country: US (occurrence: None)
  Receive Date: 20220809
  Receipt Date: 20220809
  Transmission Date: 20221027
  Serious: Yes (Death)
  Sender: FDA-Public Use
  Company Number: None

PATIENT
  Sex: Male

DRUGS (10)
  1. KEYTRUDA [Suspect]
     Active Substance: PEMBROLIZUMAB
     Indication: Lung neoplasm malignant
     Route: 042
     Dates: start: 20220215
  2. ALENDRONATE [Concomitant]
     Active Substance: ALENDRONATE SODIUM
  3. ALPRAZOLAM [Concomitant]
     Active Substance: ALPRAZOLAM
  4. GLIMEPIRIDE TAB [Concomitant]
  5. HYDROCHLOROT TAB [Concomitant]
  6. LEVETIRACETA [Concomitant]
  7. LEVOTHYROXIN TAB [Concomitant]
  8. PREDNISONE [Concomitant]
     Active Substance: PREDNISONE
  9. STIOLTO AER [Concomitant]
  10. VITAMIN D3 CAP [Concomitant]

REACTIONS (1)
  - Death [None]
